FAERS Safety Report 17210562 (Version 1)
Quarter: 2019Q4

REPORT INFORMATION
  Report Type: Spontaneous
  Country: CA (occurrence: CA)
  Receive Date: 20191227
  Receipt Date: 20191227
  Transmission Date: 20200122
  Serious: Yes (Hospitalization, Other)
  Sender: FDA-Public Use
  Company Number: CA-JNJFOC-20191239012

PATIENT
  Sex: Female

DRUGS (10)
  1. TETRACYCLINE [Suspect]
     Active Substance: TETRACYCLINE
     Indication: PRODUCT USED FOR UNKNOWN INDICATION
  2. CIPROFLOXACIN. [Concomitant]
     Active Substance: CIPROFLOXACIN
     Route: 065
  3. AZATHIOPRINE. [Concomitant]
     Active Substance: AZATHIOPRINE
     Route: 048
  4. GABAPENTIN. [Concomitant]
     Active Substance: GABAPENTIN
     Route: 048
  5. T3 [Suspect]
     Active Substance: LIOTHYRONINE SODIUM
     Indication: PRODUCT USED FOR UNKNOWN INDICATION
     Route: 065
  6. TRAMACET [Suspect]
     Active Substance: ACETAMINOPHEN\TRAMADOL
     Indication: PRODUCT USED FOR UNKNOWN INDICATION
     Route: 048
  7. CODEINE [Suspect]
     Active Substance: CODEINE
     Indication: PRODUCT USED FOR UNKNOWN INDICATION
     Route: 065
  8. METRONIDAZOLE. [Suspect]
     Active Substance: METRONIDAZOLE
     Indication: PRODUCT USED FOR UNKNOWN INDICATION
     Route: 065
  9. TYLENOL [Concomitant]
     Active Substance: ACETAMINOPHEN
     Route: 065
  10. ADVIL [Concomitant]
     Active Substance: IBUPROFEN
     Route: 065

REACTIONS (5)
  - Rash [Unknown]
  - Hypersensitivity [Unknown]
  - Fistula [Unknown]
  - Therapeutic product cross-reactivity [Unknown]
  - Abscess [Unknown]
